FAERS Safety Report 24783033 (Version 4)
Quarter: 2025Q2

REPORT INFORMATION
  Report Type: Spontaneous
  Country: JP (occurrence: JP)
  Receive Date: 20241227
  Receipt Date: 20250612
  Transmission Date: 20250717
  Serious: Yes (Hospitalization, Other)
  Sender: GALDERMA
  Company Number: JP-GALDERMA-JP2024018633

PATIENT

DRUGS (3)
  1. NEMOLIZUMAB [Suspect]
     Active Substance: NEMOLIZUMAB
     Indication: Neurodermatitis
     Route: 058
     Dates: start: 20240806, end: 20240806
  2. NEMOLIZUMAB [Suspect]
     Active Substance: NEMOLIZUMAB
     Route: 058
     Dates: start: 20240903, end: 20240903
  3. NEMOLIZUMAB [Suspect]
     Active Substance: NEMOLIZUMAB
     Route: 058
     Dates: start: 2024, end: 2024

REACTIONS (2)
  - Pemphigoid [Not Recovered/Not Resolved]
  - Lacunar infarction [Recovered/Resolved with Sequelae]

NARRATIVE: CASE EVENT DATE: 20241029
